FAERS Safety Report 5449053-2 (Version None)
Quarter: 2007Q3

REPORT INFORMATION
  Report Type: 
  Country: None (occurrence: None)
  Receive Date: 20070911
  Receipt Date: 20070831
  Transmission Date: 20080115
  Serious: Yes (Other)
  Sender: FDA-Public Use
  Company Number: US-ROCHE-515064

PATIENT
  Age: 15 Year
  Sex: Male

DRUGS (3)
  1. ACCUTANE [Suspect]
     Dosage: COURSE 1:  REPORTED AS A ^CYCLE^ OF ACCUTANE, THE FIRST OF 2 CYCLES IN 1998.
     Route: 065
     Dates: end: 19980101
  2. ACCUTANE [Suspect]
     Dosage: COURSE 2:  REPORTED AS A ^CYCLE^ OF ACCUTANE, THE SECOND OF 2 CYCLES IN 1998.
     Route: 065
     Dates: end: 19980101
  3. SYNTHROID [Concomitant]

REACTIONS (2)
  - DEPRESSION [None]
  - SUICIDAL IDEATION [None]
